FAERS Safety Report 4434232-3 (Version None)
Quarter: 2004Q3

REPORT INFORMATION
  Report Type: 
  Country: None (occurrence: None)
  Receive Date: 20040825
  Receipt Date: 20040805
  Transmission Date: 20050211
  Serious: Yes (Other)
  Sender: FDA-Public Use
  Company Number: US_0408104641

PATIENT
  Age: 73 Year

DRUGS (4)
  1. GEMCITABINE HYDROCHLORIDE-IV (GEMCITABINE) [Suspect]
     Indication: ADENOCARCINOMA PANCREAS
     Dosage: 1000 MG/M2/3 MONTH
  2. FLUOROURACIL [Concomitant]
  3. DEXAMETHASONE [Concomitant]
  4. METOCLOPRAMIDE [Concomitant]

REACTIONS (3)
  - DRUG TOXICITY [None]
  - ERYSIPELAS [None]
  - OEDEMA PERIPHERAL [None]
